FAERS Safety Report 7076800-9 (Version None)
Quarter: 2010Q4

REPORT INFORMATION
  Report Type: 
  Country: None (occurrence: None)
  Receive Date: 20101101
  Receipt Date: 20101022
  Transmission Date: 20110411
  Serious: Yes (Other)
  Sender: FDA-Public Use
  Company Number: BR-ASTRAZENECA-2010SE50492

PATIENT
  Age: 10 Year
  Sex: Male

DRUGS (2)
  1. SYMBICORT [Suspect]
     Indication: ASTHMA
     Dosage: 160/4.5 MCG DAILY
     Route: 055
     Dates: start: 20100901
  2. PREDSIM [Concomitant]
     Indication: HYPERSENSITIVITY
     Route: 048
     Dates: start: 20100501, end: 20101018

REACTIONS (3)
  - DYSPNOEA [None]
  - EYE SWELLING [None]
  - NASAL INFLAMMATION [None]
